FAERS Safety Report 15647881 (Version 1)
Quarter: 2018Q4

REPORT INFORMATION
  Report Type: Spontaneous
  Country: US (occurrence: US)
  Receive Date: 20181122
  Receipt Date: 20181122
  Transmission Date: 20190205
  Serious: Yes (Other)
  Sender: FDA-Public Use
  Company Number: US-PFIZER INC-2018469634

PATIENT
  Age: 59 Year
  Sex: Female
  Weight: 96.62 kg

DRUGS (1)
  1. NIFEDIPINE. [Suspect]
     Active Substance: NIFEDIPINE
     Dosage: 90 MG, [3X 30 MG XL TO EQUAL 90 MG DOSE]

REACTIONS (5)
  - Blood pressure increased [Recovered/Resolved]
  - Weight decreased [Unknown]
  - Hyperhidrosis [Unknown]
  - Chest pain [Unknown]
  - Feeling abnormal [Unknown]

NARRATIVE: CASE EVENT DATE: 20181113
